FAERS Safety Report 4629935-1 (Version None)
Quarter: 2005Q2

REPORT INFORMATION
  Report Type: 
  Country: None (occurrence: None)
  Receive Date: 20050408
  Receipt Date: 20050328
  Transmission Date: 20051028
  Serious: Yes (Other)
  Sender: FDA-Public Use
  Company Number: MY-BRISTOL-MYERS SQUIBB COMPANY-12912531

PATIENT
  Age: 49 Year
  Sex: Male

DRUGS (6)
  1. CISPLATIN [Suspect]
     Indication: THYMOMA
     Dosage: GIVEN ON DAY 1
  2. DOXORUBICIN HCL [Suspect]
     Indication: THYMOMA
     Dosage: GIVEN ON DAY 1
  3. ETOPOSIDE [Suspect]
     Indication: THYMOMA
     Dosage: GIVEN ON DAYS 1, 3 AND 5
  4. DEXAMETHASONE [Concomitant]
     Indication: PROPHYLAXIS OF NAUSEA AND VOMITING
  5. ONDANSETRON [Concomitant]
     Indication: PROPHYLAXIS OF NAUSEA AND VOMITING
  6. METOCLOPRAMIDE [Concomitant]
     Indication: PROPHYLAXIS OF NAUSEA AND VOMITING

REACTIONS (2)
  - MYASTHENIA GRAVIS [None]
  - RESPIRATORY FAILURE [None]
